FAERS Safety Report 13457930 (Version 2)
Quarter: 2017Q3

REPORT INFORMATION
  Report Type: Spontaneous
  Country: JP (occurrence: JP)
  Receive Date: 20170419
  Receipt Date: 20170810
  Transmission Date: 20171127
  Serious: Yes (Other)
  Sender: FDA-Public Use
  Company Number: JP-BAYER-2017-070311

PATIENT
  Age: 80 Year
  Sex: Male
  Weight: 35.8 kg

DRUGS (2)
  1. XOFIGO [Suspect]
     Active Substance: RADIUM RA-223 DICHLORIDE
     Indication: PROSTATE CANCER METASTATIC
     Dosage: 55 KBQ/KG
     Route: 042
     Dates: start: 20170131, end: 20170131
  2. XOFIGO [Suspect]
     Active Substance: RADIUM RA-223 DICHLORIDE
     Indication: METASTASES TO BONE
     Dosage: 55 KBQ/KG
     Route: 042
     Dates: start: 20170228, end: 20170228

REACTIONS (1)
  - Pneumonia aspiration [Recovered/Resolved]

NARRATIVE: CASE EVENT DATE: 20170328
